FAERS Safety Report 9316501 (Version 1)
Quarter: 2013Q2

REPORT INFORMATION
  Report Type: Spontaneous
  Country: US (occurrence: US)
  Receive Date: 20130530
  Receipt Date: 20130530
  Transmission Date: 20140414
  Serious: No
  Sender: FDA-Public Use
  Company Number: US-BAYER-2013-066266

PATIENT
  Sex: Male

DRUGS (10)
  1. BETASERON [Suspect]
     Dosage: 0.3 MG, QOD
     Route: 058
  2. REQUIP [Concomitant]
     Dosage: UNK
  3. NIFEDICAL [Concomitant]
     Dosage: UNK
  4. CLONAZEPAM [Concomitant]
     Dosage: UNK
  5. PHENOBARB [Concomitant]
     Dosage: UNK
  6. CALCIUM [Concomitant]
     Dosage: 500 UNK, QD
  7. VITAMIN D [Concomitant]
  8. VITAMIN C [Concomitant]
     Dosage: UNK
  9. ACTONEL [Concomitant]
     Dosage: UNK
  10. GABAPENTIN [Concomitant]
     Dosage: UNK

REACTIONS (2)
  - Injection site erythema [Unknown]
  - Injection site pruritus [Unknown]
